FAERS Safety Report 10657457 (Version 2)
Quarter: 2014Q4

REPORT INFORMATION
  Report Type: Report from Study
  Country: TH (occurrence: TH)
  Receive Date: 20141217
  Receipt Date: 20141217
  Transmission Date: 20150529
  Serious: Yes (Hospitalization)
  Sender: FDA-Public Use
  Company Number: TH-EISAI MEDICAL RESEARCH-E2007-01781-CLI-TH

PATIENT
  Age: 29 Year
  Sex: Female
  Weight: 43.2 kg

DRUGS (8)
  1. PERAMPANEL [Suspect]
     Active Substance: PERAMPANEL
     Dosage: CONVERSION
     Route: 048
     Dates: start: 20140324, end: 201406
  2. TOPAMAX [Concomitant]
     Active Substance: TOPIRAMATE
  3. PERAMPANEL [Suspect]
     Active Substance: PERAMPANEL
     Indication: PARTIAL SEIZURES
     Route: 048
     Dates: start: 20130930, end: 20140323
  4. LAMOTRIGINE. [Concomitant]
     Active Substance: LAMOTRIGINE
  5. PERAMPANEL [Suspect]
     Active Substance: PERAMPANEL
     Dosage: UNKNOWN
     Route: 048
     Dates: start: 201406, end: 20140702
  6. FOLIC ACID. [Concomitant]
     Active Substance: FOLIC ACID
  7. ZIMMEX [Concomitant]
  8. TOPIRAMATE. [Concomitant]
     Active Substance: TOPIRAMATE

REACTIONS (2)
  - Altered state of consciousness [Recovered/Resolved]
  - Postictal psychosis [Recovered/Resolved]

NARRATIVE: CASE EVENT DATE: 20140703
